FAERS Safety Report 8100480-4 (Version None)
Quarter: 2012Q1

REPORT INFORMATION
  Report Type: 
  Country: None (occurrence: None)
  Receive Date: 20120129
  Receipt Date: 20111103
  Transmission Date: 20120608
  Serious: No
  Sender: FDA-Public Use
  Company Number: US-ABBOTT-11P-163-0870701-00

PATIENT
  Sex: Female
  Weight: 83.99 kg

DRUGS (8)
  1. LOVAZA [Concomitant]
     Indication: SUPPLEMENTATION THERAPY
  2. TRAZODONE HCL [Concomitant]
     Indication: INSOMNIA
  3. SINGULAIR [Concomitant]
     Indication: ASTHMA
  4. PLAQUENIL [Concomitant]
     Indication: RHEUMATOID ARTHRITIS
  5. HUMIRA [Suspect]
     Indication: RHEUMATOID ARTHRITIS
     Route: 058
     Dates: start: 20010101, end: 20110601
  6. METHOTREXATE [Suspect]
     Indication: RHEUMATOID ARTHRITIS
     Dates: start: 20020101, end: 20110501
  7. MULTI-VITAMIN [Concomitant]
     Indication: VITAMIN SUPPLEMENTATION
  8. EVISTA [Concomitant]
     Indication: OSTEOARTHRITIS

REACTIONS (1)
  - ALOPECIA [None]
